FAERS Safety Report 5593103-X (Version None)
Quarter: 2008Q1

REPORT INFORMATION
  Report Type: 
  Country: None (occurrence: None)
  Receive Date: 20080114
  Receipt Date: 20080114
  Transmission Date: 20080703
  Serious: Yes (Death, Hospitalization)
  Sender: FDA-Public Use
  Company Number: None

PATIENT
  Sex: Female
  Weight: 61.9 kg

DRUGS (5)
  1. CARMUSTINE [Suspect]
     Dosage: 794 MG
     Dates: end: 20070920
  2. CYCLOPHOSPHAMIDE [Suspect]
     Dosage: 5290 MG
     Dates: end: 20070924
  3. ETOPOSIDE [Suspect]
     Dosage: 3174 MG
     Dates: end: 20070922
  4. MESNA [Suspect]
     Dosage: 6348 MG
     Dates: end: 20070924
  5. RITUXIMAB (MOAB C2B8 ANTI CD20, CHIMERIC) [Suspect]
     Dosage: 1186 MG
     Dates: end: 20071112

REACTIONS (15)
  - ABDOMINAL DISCOMFORT [None]
  - ANOREXIA [None]
  - ASPIRATION [None]
  - ASTHENIA [None]
  - BRONCHOALVEOLAR LAVAGE ABNORMAL [None]
  - HEADACHE [None]
  - INTERNATIONAL NORMALISED RATIO INCREASED [None]
  - LUNG INFILTRATION [None]
  - METABOLIC ACIDOSIS [None]
  - MUSCULOSKELETAL PAIN [None]
  - PULMONARY ALVEOLAR HAEMORRHAGE [None]
  - RENAL IMPAIRMENT [None]
  - RESPIRATORY DISORDER [None]
  - URINE OUTPUT DECREASED [None]
  - VOMITING [None]
